FAERS Safety Report 9515035 (Version 1)
Quarter: 2013Q3

REPORT INFORMATION
  Report Type: Spontaneous
  Country: US (occurrence: US)
  Receive Date: 20130911
  Receipt Date: 20130911
  Transmission Date: 20140515
  Serious: No
  Sender: FDA-Public Use
  Company Number: US-JNJFOC-20130902010

PATIENT
  Age: 64 Year
  Sex: Female
  Weight: 71.67 kg

DRUGS (4)
  1. DURAGESIC [Suspect]
     Indication: PAIN
     Route: 062
     Dates: start: 2013
  2. OXYCODONE [Concomitant]
     Indication: NECK PAIN
     Route: 048
  3. NEURONTIN [Concomitant]
     Indication: BACK PAIN
     Route: 048
     Dates: start: 2013
  4. NEURONTIN [Concomitant]
     Indication: PAIN IN EXTREMITY
     Route: 048
     Dates: start: 2013

REACTIONS (2)
  - Drug dose omission [Recovered/Resolved]
  - Product quality issue [Unknown]
